FAERS Safety Report 25345340 (Version 1)
Quarter: 2025Q2

REPORT INFORMATION
  Report Type: Spontaneous
  Country: DE (occurrence: DE)
  Receive Date: 20250522
  Receipt Date: 20250522
  Transmission Date: 20250717
  Serious: Yes (Other)
  Sender: TEVA
  Company Number: DE-TEVA-VS-3332463

PATIENT
  Age: 86 Year
  Sex: Female
  Weight: 46 kg

DRUGS (3)
  1. AMLODIPINE\HYDROCHLOROTHIAZIDE\OLMESARTAN [Suspect]
     Active Substance: AMLODIPINE\HYDROCHLOROTHIAZIDE\OLMESARTAN
     Indication: Hypertension
     Dosage: 20 MG/5 MG/12,5 MG FILMTABLETTEN
     Route: 065
     Dates: end: 20250510
  2. AMLODIPINE\HYDROCHLOROTHIAZIDE\OLMESARTAN [Suspect]
     Active Substance: AMLODIPINE\HYDROCHLOROTHIAZIDE\OLMESARTAN
     Indication: Hypertension
     Route: 065
     Dates: start: 2023
  3. MAGNESIUM [Concomitant]
     Active Substance: MAGNESIUM
     Indication: Product used for unknown indication
     Route: 065

REACTIONS (13)
  - Dysphagia [Unknown]
  - Movement disorder [Unknown]
  - Muscular weakness [Unknown]
  - Fluid retention [Unknown]
  - Dyspnoea [Unknown]
  - Gait inability [Recovered/Resolved]
  - Gait disturbance [Unknown]
  - Muscle spasms [Recovered/Resolved]
  - Pain in extremity [Unknown]
  - Blood cholesterol increased [Unknown]
  - Dizziness [Recovered/Resolved]
  - Fall [Unknown]
  - Grip strength decreased [Recovered/Resolved]

NARRATIVE: CASE EVENT DATE: 20250101
